FAERS Safety Report 13968381 (Version 1)
Quarter: 2017Q3

REPORT INFORMATION
  Report Type: Spontaneous
  Country: FR (occurrence: FR)
  Receive Date: 20170914
  Receipt Date: 20170914
  Transmission Date: 20171128
  Serious: Yes (Hospitalization)
  Sender: FDA-Public Use
  Company Number: FR-SA-2017SA163187

PATIENT
  Age: 5 Year
  Sex: Male
  Weight: 17.2 kg

DRUGS (4)
  1. UN-ALFA [Concomitant]
     Active Substance: ALFACALCIDOL
     Route: 048
  2. CALCIDOSE [Concomitant]
     Active Substance: CALCIUM CARBONATE
     Route: 048
  3. RENVELA [Concomitant]
     Active Substance: SEVELAMER CARBONATE
     Route: 048
  4. LOVENOX [Suspect]
     Active Substance: ENOXAPARIN SODIUM
     Indication: THROMBOSIS
     Route: 058
     Dates: start: 201705, end: 20170817

REACTIONS (1)
  - Catheter site thrombosis [Not Recovered/Not Resolved]

NARRATIVE: CASE EVENT DATE: 201705
